FAERS Safety Report 15659108 (Version 1)
Quarter: 2018Q4

REPORT INFORMATION
  Report Type: Spontaneous
  Country: DK (occurrence: DK)
  Receive Date: 20181127
  Receipt Date: 20181127
  Transmission Date: 20190205
  Serious: Yes (Disabling)
  Sender: FDA-Public Use
  Company Number: DK-SA-2018SA320276

PATIENT
  Age: 46 Year
  Sex: Male

DRUGS (20)
  1. EKLIRA GENUAIR [Concomitant]
     Active Substance: ACLIDINIUM BROMIDE
     Indication: ASTHMA
     Dosage: STRENGTH: 322 MIKROGRAM
     Route: 055
     Dates: start: 20180327
  2. PAMOL [Concomitant]
     Active Substance: ACETAMINOPHEN
     Indication: PAIN
     Dosage: STYRKE: 500 MG.
     Route: 048
     Dates: start: 2016
  3. FEXOFENADINE [Concomitant]
     Active Substance: FEXOFENADINE\FEXOFENADINE HYDROCHLORIDE
     Indication: HYPERSENSITIVITY
     Dosage: STRENGTH: 180 MG
     Route: 048
     Dates: start: 2015
  4. FUCICORT [Concomitant]
     Active Substance: BETAMETHASONE VALERATE\FUSIDIC ACID
     Indication: ECZEMA
     Dosage: STYRKE: 1+20 MG/G
     Route: 061
     Dates: start: 20180816
  5. LOSARTANKALIUM [Concomitant]
     Active Substance: LOSARTAN
     Indication: HYPERTENSION
     Dosage: STRENGTH: 100MG
     Route: 048
     Dates: start: 2013
  6. LOCOID [Concomitant]
     Active Substance: HYDROCORTISONE BUTYRATE
     Indication: ECZEMA
     Dosage: STRENGTH: 0,1 %
     Route: 061
  7. DUPIXENT [Suspect]
     Active Substance: DUPILUMAB
     Indication: ECZEMA
     Dosage: STRENGTH: 300 MG
     Route: 058
     Dates: start: 20180509
  8. CLOBEX [CLOBETASOL PROPIONATE] [Concomitant]
     Indication: ECZEMA
     Dosage: STYRKE: 500 MIKROGRAM/G
     Route: 061
     Dates: start: 20151102
  9. OPATANOL [Concomitant]
     Active Substance: OLOPATADINE
     Indication: CONJUNCTIVITIS ALLERGIC
     Dosage: STRENGTH: 1 MG/ML
     Route: 050
     Dates: start: 2014
  10. KETOCONAZOLE. [Concomitant]
     Active Substance: KETOCONAZOLE
     Indication: DANDRUFF
     Dosage: STYRKE: 2 % (20MG/G)
     Route: 061
     Dates: start: 2015
  11. BETNOVAT [BETAMETHASONE VALERATE] [Concomitant]
     Indication: ECZEMA
     Dosage: STRENGTH: 1 MG/G
     Route: 061
     Dates: start: 20180509
  12. SINGULAIR [Concomitant]
     Active Substance: MONTELUKAST SODIUM
     Indication: ASTHMA
     Dosage: STRENGTH: 10 MG
     Route: 048
     Dates: start: 2006
  13. MELATONIN [Concomitant]
     Active Substance: MELATONIN
     Indication: INSOMNIA
     Dosage: STRENGTH: 3 MG
     Route: 048
     Dates: start: 2016
  14. DYMISTA [Concomitant]
     Active Substance: AZELASTINE HYDROCHLORIDE\FLUTICASONE PROPIONATE
     Indication: RHINITIS ALLERGIC
     Dosage: STYRKE: 1000+365 MIKROGRAM
     Route: 045
     Dates: start: 201705
  15. ELIDEL [Concomitant]
     Active Substance: PIMECROLIMUS
     Indication: ECZEMA
     Dosage: STRENGTH: 1 %
     Route: 061
     Dates: start: 20180509
  16. FLUTIFORM [Concomitant]
     Active Substance: FLUTICASONE PROPIONATE\FORMOTEROL FUMARATE
     Indication: ASTHMA
     Dosage: STRENGTH: 250+10 MIKROGRAM
     Dates: start: 201705
  17. CALCIUM CARBONATE W/COLECALCIFEROL [Concomitant]
     Active Substance: CALCIUM CARBONATE\CHOLECALCIFEROL
     Indication: MINERAL SUPPLEMENTATION
     Route: 048
     Dates: start: 2014
  18. VENTOLINE [SALBUTAMOL] [Concomitant]
     Active Substance: ALBUTEROL SULFATE
     Indication: ASTHMA
     Dosage: STRENGTH: 0,2 MG
     Route: 055
  19. FOLIMET [Concomitant]
     Indication: FOLATE DEFICIENCY
     Dosage: STRENGTH: 5 MG
     Route: 048
     Dates: start: 2013
  20. DERMOVAT [CLOBETASOL PROPIONATE] [Concomitant]
     Indication: ECZEMA
     Dosage: STYRKE: 0,5 MG/G
     Route: 061

REACTIONS (9)
  - Lacrimation increased [Not Recovered/Not Resolved]
  - Eczema [Not Recovered/Not Resolved]
  - Eye discharge [Not Recovered/Not Resolved]
  - Ocular hyperaemia [Not Recovered/Not Resolved]
  - Keratopathy [Not Recovered/Not Resolved]
  - Sebaceous gland disorder [Not Recovered/Not Resolved]
  - Vision blurred [Not Recovered/Not Resolved]
  - Eye pruritus [Not Recovered/Not Resolved]
  - Foreign body sensation in eyes [Not Recovered/Not Resolved]

NARRATIVE: CASE EVENT DATE: 201806
